FAERS Safety Report 15658999 (Version 1)
Quarter: 2018Q4

REPORT INFORMATION
  Report Type: Spontaneous
  Country: US (occurrence: US)
  Receive Date: 20181127
  Receipt Date: 20181127
  Transmission Date: 20190205
  Serious: No
  Sender: FDA-Public Use
  Company Number: US-AMGEN INC.-USASP2018165342

PATIENT
  Age: 72 Year
  Sex: Male

DRUGS (1)
  1. AIMOVIG [Suspect]
     Active Substance: ERENUMAB-AOOE
     Indication: MIGRAINE WITH AURA
     Dosage: 70 MG, UNK
     Route: 065
     Dates: start: 2018, end: 2018

REACTIONS (4)
  - Memory impairment [Not Recovered/Not Resolved]
  - Drug ineffective [Unknown]
  - Thinking abnormal [Unknown]
  - Coronary artery disease [Unknown]

NARRATIVE: CASE EVENT DATE: 2018
